FAERS Safety Report 8095746-0 (Version None)
Quarter: 2012Q1

REPORT INFORMATION
  Report Type: 
  Country: None (occurrence: None)
  Receive Date: 20120131
  Receipt Date: 20120117
  Transmission Date: 20120608
  Serious: Yes (Death, Hospitalization, Other)
  Sender: FDA-Public Use
  Company Number: US-ELI_LILLY_AND_COMPANY-US201011007296

PATIENT
  Sex: Female
  Weight: 58 kg

DRUGS (18)
  1. FORTEO [Suspect]
     Dosage: 20 UG, QD
  2. FISH OIL [Concomitant]
  3. POTASSIUM [Concomitant]
  4. C-VITAMIN [Concomitant]
  5. VITAMINS NOS [Concomitant]
  6. FORTEO [Suspect]
     Dosage: 20 UG, QD
  7. CRANBERRY [Concomitant]
  8. FORTEO [Suspect]
     Dosage: 20 UG, QD
  9. FORTEO [Suspect]
     Dosage: 20 UG, QD
  10. MAGNESIUM [Concomitant]
  11. FERROUS SULFATE TAB [Concomitant]
  12. PROGESTIN INJ [Concomitant]
     Indication: BONE DISORDER
  13. VITAMIN D [Concomitant]
     Dosage: UNK
  14. CALCIUM [Concomitant]
  15. ASPIRIN [Concomitant]
  16. FORTEO [Suspect]
     Dosage: 20 UG, QD
  17. VITAMIN K TAB [Concomitant]
     Dosage: UNK, 3/W
  18. FORTEO [Suspect]
     Indication: OSTEOPOROSIS
     Dosage: 20 UG, QD
     Dates: start: 20101118

REACTIONS (19)
  - CAROTID ARTERY STENOSIS [None]
  - FEAR [None]
  - HEART RATE IRREGULAR [None]
  - VEIN DISORDER [None]
  - DEATH [None]
  - URINARY TRACT INFECTION [None]
  - CAROTID ARTERY OCCLUSION [None]
  - FALL [None]
  - DEPRESSED LEVEL OF CONSCIOUSNESS [None]
  - VENOUS INJURY [None]
  - VOMITING [None]
  - SKIN INJURY [None]
  - CONTUSION [None]
  - VAGINAL HAEMORRHAGE [None]
  - ASTHENIA [None]
  - ILL-DEFINED DISORDER [None]
  - SPEECH DISORDER [None]
  - TREMOR [None]
  - MACULAR DEGENERATION [None]
